FAERS Safety Report 5806131-3 (Version None)
Quarter: 2008Q3

REPORT INFORMATION
  Report Type: 
  Country: None (occurrence: None)
  Receive Date: 20080710
  Receipt Date: 20080702
  Transmission Date: 20090109
  Serious: Yes (Hospitalization, Disabling)
  Sender: FDA-Public Use
  Company Number: JP-MERCK-0805USA05443

PATIENT
  Age: 78 Year
  Sex: Female

DRUGS (9)
  1. STROMECTOL [Suspect]
     Indication: ACRODERMATITIS
     Route: 048
     Dates: start: 20080426, end: 20080426
  2. KOLANTYL [Concomitant]
     Indication: ACARODERMATITIS
     Route: 048
     Dates: start: 20080426
  3. EURAX-H [Concomitant]
     Indication: ACARODERMATITIS
     Route: 061
     Dates: start: 20080426
  4. LINDANE [Concomitant]
     Indication: ACRODERMATITIS
     Route: 065
     Dates: start: 20080426
  5. JUVELA [Concomitant]
     Route: 065
  6. TOUGHMAC E [Concomitant]
     Route: 048
  7. CLARITIN [Concomitant]
     Route: 048
  8. ARICEPT [Concomitant]
     Route: 048
  9. GRAMALIL [Concomitant]
     Route: 048

REACTIONS (2)
  - CEREBRAL INFARCTION [None]
  - DEPRESSED LEVEL OF CONSCIOUSNESS [None]
